FAERS Safety Report 12304566 (Version 27)
Quarter: 2024Q1

REPORT INFORMATION
  Report Type: Report from Study
  Country: CA (occurrence: CA)
  Receive Date: 20160426
  Receipt Date: 20240229
  Transmission Date: 20240410
  Serious: Yes (Hospitalization, Other)
  Sender: FDA-Public Use
  Company Number: PHHY2016CA055639

PATIENT
  Age: 55 Year
  Sex: Female

DRUGS (19)
  1. ILARIS [Suspect]
     Active Substance: CANAKINUMAB
     Indication: Muckle-Wells syndrome
     Dosage: 150 MG, EVERY 7 WEEKS
     Route: 058
     Dates: start: 20140602
  2. ILARIS [Suspect]
     Active Substance: CANAKINUMAB
     Dosage: 150 MG, EVERY 8 WEEKS
     Route: 058
  3. ILARIS [Suspect]
     Active Substance: CANAKINUMAB
     Dosage: 150 MG, EVERY 7 WEEKS
     Route: 058
     Dates: start: 20181016
  4. ILARIS [Suspect]
     Active Substance: CANAKINUMAB
     Dosage: 150 MG, UNK (EVERY 7 WEEKS)
     Route: 058
     Dates: start: 20181130
  5. ILARIS [Suspect]
     Active Substance: CANAKINUMAB
     Dosage: 150 MG, EVERY 7 WEEKS
     Route: 058
     Dates: start: 20190111
  6. ILARIS [Suspect]
     Active Substance: CANAKINUMAB
     Dosage: 150 MG, EVERY 7 WEEKS
     Route: 058
     Dates: start: 20190228
  7. ILARIS [Suspect]
     Active Substance: CANAKINUMAB
     Dosage: 150 MG, 7 WEEKS
     Route: 065
     Dates: start: 20190418
  8. ILARIS [Suspect]
     Active Substance: CANAKINUMAB
     Dosage: 150 MG, 7 WEEKS
     Route: 058
     Dates: start: 20190724
  9. ILARIS [Suspect]
     Active Substance: CANAKINUMAB
     Dosage: 150 MG, 7 WEEKS
     Route: 058
     Dates: start: 20191031
  10. ILARIS [Suspect]
     Active Substance: CANAKINUMAB
     Dosage: 150 MG, EVERY 7 WEEKS
     Route: 065
     Dates: start: 20191219
  11. ILARIS [Suspect]
     Active Substance: CANAKINUMAB
     Dosage: 150 MG, EVERY 7 WEEKS
     Route: 058
     Dates: start: 20200909
  12. ILARIS [Suspect]
     Active Substance: CANAKINUMAB
     Dosage: 150 MG, EVERY 7 WEEKS
     Route: 058
     Dates: start: 20201102
  13. ILARIS [Suspect]
     Active Substance: CANAKINUMAB
     Dosage: UNK (150 MG, EVERY 8 WEEKS)
     Route: 058
  14. ILARIS [Suspect]
     Active Substance: CANAKINUMAB
     Dosage: UNK
     Route: 065
     Dates: start: 202204
  15. ILARIS [Suspect]
     Active Substance: CANAKINUMAB
     Dosage: 150 MG EVERY 7 WEEEKS
     Route: 065
  16. ILARIS [Suspect]
     Active Substance: CANAKINUMAB
     Dosage: 150 MG, EVERY 6 WEEKS
     Route: 065
  17. CRESTOR [Concomitant]
     Active Substance: ROSUVASTATIN CALCIUM
     Indication: Product used for unknown indication
     Dosage: UNK
     Route: 065
  18. CANDESARTAN [Concomitant]
     Active Substance: CANDESARTAN
     Indication: Product used for unknown indication
     Dosage: UNK
     Route: 065
  19. METFORMIN [Concomitant]
     Active Substance: METFORMIN HYDROCHLORIDE
     Indication: Diabetes mellitus
     Dosage: UNK
     Route: 065

REACTIONS (49)
  - Fall [Unknown]
  - Lower limb fracture [Recovered/Resolved]
  - Neck pain [Unknown]
  - Spinal pain [Unknown]
  - Back pain [Unknown]
  - Arthralgia [Unknown]
  - Deafness [Recovered/Resolved]
  - Blood pressure diastolic decreased [Unknown]
  - Serum amyloid A protein increased [Unknown]
  - Temperature intolerance [Unknown]
  - Hypoacusis [Unknown]
  - Rash [Recovered/Resolved]
  - Blood pressure increased [Unknown]
  - Pyrexia [Recovered/Resolved]
  - Pterygium [Unknown]
  - Weight increased [Unknown]
  - Appetite disorder [Unknown]
  - Varicose vein [Not Recovered/Not Resolved]
  - Fatigue [Recovering/Resolving]
  - Concomitant disease aggravated [Not Recovered/Not Resolved]
  - Malaise [Unknown]
  - Somnolence [Unknown]
  - Depression [Unknown]
  - Erythema [Unknown]
  - Joint stiffness [Unknown]
  - Asthenia [Unknown]
  - Peripheral swelling [Unknown]
  - Pain in extremity [Unknown]
  - Ocular hyperaemia [Recovered/Resolved]
  - Incision site haemorrhage [Unknown]
  - Chills [Recovered/Resolved]
  - Rash [Not Recovered/Not Resolved]
  - Myalgia [Recovered/Resolved]
  - Ocular discomfort [Recovered/Resolved]
  - Onychoclasis [Unknown]
  - Administration site pain [Unknown]
  - Administration site swelling [Unknown]
  - Administration site discolouration [Unknown]
  - Nasopharyngitis [Recovering/Resolving]
  - Dysphonia [Not Recovered/Not Resolved]
  - Cough [Not Recovered/Not Resolved]
  - Rhinorrhoea [Not Recovered/Not Resolved]
  - Conjunctivitis [Unknown]
  - Administration site infection [Unknown]
  - Skin disorder [Unknown]
  - Urticaria papular [Unknown]
  - Autoinflammatory disease [Unknown]
  - Inappropriate schedule of product administration [Unknown]
  - Product dose omission issue [Unknown]

NARRATIVE: CASE EVENT DATE: 20150701
